FAERS Safety Report 15305968 (Version 1)
Quarter: 2018Q3

REPORT INFORMATION
  Report Type: Spontaneous
  Country: NL (occurrence: NL)
  Receive Date: 20180822
  Receipt Date: 20180822
  Transmission Date: 20181010
  Serious: Yes (Other)
  Sender: FDA-Public Use
  Company Number: NL-ROCHE-2172940

PATIENT
  Age: 59 Year
  Sex: Male
  Weight: 126 kg

DRUGS (3)
  1. AVASTIN [Suspect]
     Active Substance: BEVACIZUMAB
     Indication: COLON CANCER METASTATIC
     Dosage: 1X PER 3 WEKEN
     Route: 050
     Dates: start: 20170927
  2. TEYSUNO [Interacting]
     Active Substance: GIMERACIL\OTERACIL\TEGAFUR
     Indication: COLON CANCER METASTATIC
     Dosage: 2 X DAAGS 1 CAPSULE, EN 2 X DAAGS 2 CAPSULES VAN 15,4/35/11,8
     Route: 050
     Dates: start: 20180419
  3. TEYSUNO [Interacting]
     Active Substance: GIMERACIL\OTERACIL\TEGAFUR
     Dosage: 2 X DAAGS 1 CAPSULE, EN 2 X DAAGS 2 CAPSULES VAN 15,4/35/11,8
     Route: 050
     Dates: start: 20180419

REACTIONS (4)
  - Fatigue [Not Recovered/Not Resolved]
  - Drug interaction [Unknown]
  - Rash follicular [Not Recovered/Not Resolved]
  - Bone marrow toxicity [Not Recovered/Not Resolved]

NARRATIVE: CASE EVENT DATE: 20180530
